FAERS Safety Report 7407597-8 (Version None)
Quarter: 2011Q2

REPORT INFORMATION
  Report Type: 
  Country: None (occurrence: None)
  Receive Date: 20110406
  Receipt Date: 20110406
  Transmission Date: 20111010
  Serious: No
  Sender: FDA-Public Use
  Company Number: None

PATIENT
  Age: 62 Year
  Sex: Male
  Weight: 90 kg

DRUGS (1)
  1. FERRIC NA GLUCONATE [Suspect]
     Indication: IRON DEFICIENCY ANAEMIA
     Dosage: 125 MG QWEEK IV
     Route: 042
     Dates: start: 20110217, end: 20110217

REACTIONS (1)
  - HYPOTENSION [None]
